FAERS Safety Report 16622419 (Version 1)
Quarter: 2019Q3

REPORT INFORMATION
  Report Type: Report from Study
  Country: None (occurrence: US)
  Receive Date: 20190724
  Receipt Date: 20190724
  Transmission Date: 20191004
  Serious: Yes (Hospitalization)
  Sender: FDA-Public Use
  Company Number: US-ABBVIE-19K-163-2852896-00

PATIENT
  Sex: Female
  Weight: 73.55 kg

DRUGS (4)
  1. PREDNISONE. [Concomitant]
     Active Substance: PREDNISONE
     Indication: PRODUCT USED FOR UNKNOWN INDICATION
  2. CREON [Suspect]
     Active Substance: PANCRELIPASE AMYLASE\PANCRELIPASE LIPASE\PANCRELIPASE PROTEASE
     Indication: DYSPEPSIA
     Dosage: 3 CAPSULES EACH MEAL AND 1 CAPSULE WITH SNACK
     Route: 048
     Dates: start: 2011
  3. INSULIN [Concomitant]
     Active Substance: INSULIN NOS
     Indication: PRODUCT USED FOR UNKNOWN INDICATION
  4. PLAQUENIL [Concomitant]
     Active Substance: HYDROXYCHLOROQUINE SULFATE
     Indication: SARCOIDOSIS

REACTIONS (5)
  - Sepsis [Recovered/Resolved]
  - Kidney infection [Recovering/Resolving]
  - Pneumonia [Recovered/Resolved]
  - Cystitis [Recovering/Resolving]
  - Renal abscess [Recovering/Resolving]

NARRATIVE: CASE EVENT DATE: 2019
